FAERS Safety Report 7707649-9 (Version None)
Quarter: 2011Q3

REPORT INFORMATION
  Report Type: 
  Country: None (occurrence: None)
  Receive Date: 20110824
  Receipt Date: 20110816
  Transmission Date: 20111222
  Serious: Yes (Hospitalization)
  Sender: FDA-Public Use
  Company Number: CN-BRISTOL-MYERS SQUIBB COMPANY-15994486

PATIENT
  Age: 83 Year
  Sex: Male

DRUGS (1)
  1. ERBITUX [Suspect]
     Indication: OESOPHAGEAL CARCINOMA
     Dosage: 21JUL11 600MG.28JUL11-11AUG11 14DAYS
     Route: 041
     Dates: start: 20110721, end: 20110811

REACTIONS (1)
  - BRAIN STEM HAEMORRHAGE [None]
